FAERS Safety Report 12854782 (Version 3)
Quarter: 2017Q1

REPORT INFORMATION
  Report Type: Spontaneous
  Country: US (occurrence: US)
  Receive Date: 20161017
  Receipt Date: 20170308
  Transmission Date: 20170428
  Serious: Yes (Hospitalization)
  Sender: FDA-Public Use
  Company Number: US-BAYER-2016-199008

PATIENT
  Age: 25 Year
  Sex: Female

DRUGS (1)
  1. MIRENA [Suspect]
     Active Substance: LEVONORGESTREL
     Indication: CONTRACEPTION
     Dosage: 20 MCG/24HR, CONT
     Route: 015
     Dates: start: 20100318, end: 20131104

REACTIONS (5)
  - Uterine perforation [None]
  - Abdominal pain [None]
  - Drug ineffective [None]
  - Ectopic pregnancy with contraceptive device [None]
  - Device use issue [None]

NARRATIVE: CASE EVENT DATE: 201310
